FAERS Safety Report 7328302 (Version 5)
Quarter: 2013Q1

REPORT INFORMATION
  Report Type: Spontaneous
  Country: US (occurrence: US)
  Receive Date: 20100323
  Receipt Date: 20130318
  Transmission Date: 20140127
  Serious: Yes (Hospitalization)
  Sender: FDA-Public Use
  Company Number: US-BAYER-201016911NA

PATIENT
  Age: 20 Year
  Sex: Female
  Weight: 136.36 kg

DRUGS (7)
  1. YASMIN [Suspect]
     Indication: MENSTRUAL CYCLE MANAGEMENT
     Route: 048
     Dates: start: 2005, end: 2005
  2. YASMIN [Suspect]
     Indication: ORAL CONTRACEPTION
  3. ADVAIR [Concomitant]
     Dosage: UNK
     Dates: start: 20050909
  4. ALBUTEROL [Concomitant]
     Dosage: 90 ?G, AEROSOL
     Dates: start: 20050910
  5. ERYTHROCIN [Concomitant]
     Dosage: 500 MG, UNK
     Dates: start: 20050914
  6. IBUPROFEN [IBUPROFEN SODIUM] [Concomitant]
     Indication: PAIN
     Dosage: 200 MG, UNK
     Route: 048
     Dates: start: 20051030
  7. LORATAB [Concomitant]

REACTIONS (1)
  - Deep vein thrombosis [None]
